FAERS Safety Report 7206794-4 (Version None)
Quarter: 2011Q1

REPORT INFORMATION
  Report Type: 
  Country: None (occurrence: None)
  Receive Date: 20110103
  Receipt Date: 20101227
  Transmission Date: 20110831
  Serious: Yes (Hospitalization)
  Sender: FDA-Public Use
  Company Number: FR-SANOFI-AVENTIS-2010SA078182

PATIENT
  Age: 86 Year
  Sex: Female

DRUGS (7)
  1. RIVOTRIL [Suspect]
     Dosage: DOSE:2.5 MILLIGRAM(S)/MILLILITRE
     Route: 048
     Dates: start: 20100706, end: 20100706
  2. KARDEGIC [Concomitant]
     Route: 048
  3. RISPERDAL [Suspect]
     Route: 048
     Dates: start: 20100705, end: 20100705
  4. APROVEL [Suspect]
     Route: 048
     Dates: end: 20100707
  5. SERESTA [Suspect]
     Route: 048
     Dates: start: 20100703
  6. HEMIGOXINE NATIVELLE [Concomitant]
     Route: 048
  7. LASIX [Suspect]
     Route: 048

REACTIONS (3)
  - FALL [None]
  - HYPONATRAEMIA [None]
  - BLOOD CREATININE INCREASED [None]
